FAERS Safety Report 20155869 (Version 1)
Quarter: 2021Q4

REPORT INFORMATION
  Report Type: Spontaneous
  Country: JP (occurrence: JP)
  Receive Date: 20211207
  Receipt Date: 20211207
  Transmission Date: 20220303
  Serious: Yes (Hospitalization)
  Sender: FDA-Public Use
  Company Number: JP-PFIZER INC-202101649096

PATIENT
  Age: 68 Year
  Sex: Female

DRUGS (4)
  1. PALBOCICLIB [Suspect]
     Active Substance: PALBOCICLIB
     Indication: Breast cancer
     Dosage: 100 MG, DAILY
  2. PALBOCICLIB [Suspect]
     Active Substance: PALBOCICLIB
     Dosage: 75 MG, DAILY
  3. TACROLIMUS [Concomitant]
     Active Substance: TACROLIMUS
     Dosage: 4 MG
  4. TACROLIMUS [Concomitant]
     Active Substance: TACROLIMUS
     Dosage: 3 UNK

REACTIONS (1)
  - Renal impairment [Recovering/Resolving]
